FAERS Safety Report 5755975-5 (Version None)
Quarter: 2008Q2

REPORT INFORMATION
  Report Type: 
  Country: None (occurrence: None)
  Receive Date: 20080602
  Receipt Date: 20080501
  Transmission Date: 20081010
  Serious: No
  Sender: FDA-Public Use
  Company Number: US-BAYER-200714031BCC

PATIENT
  Age: 82 Year
  Sex: Female
  Weight: 59 kg

DRUGS (9)
  1. ALEVE [Suspect]
     Indication: ARTHRITIS
     Dosage: TOTAL DAILY DOSE: 440 MG  UNIT DOSE: 220 MG
     Route: 048
     Dates: start: 20070401
  2. GABAPENTIN [Concomitant]
  3. DIOVAN [Concomitant]
  4. OSCAL [Concomitant]
  5. POTASSIUM CHLORIDE [Concomitant]
  6. ALTACE [Concomitant]
  7. VITAMIN B1 [Concomitant]
  8. NOVALIN [Concomitant]
  9. HUMALIN [Concomitant]

REACTIONS (1)
  - MUSCLE SPASMS [None]
